FAERS Safety Report 6811291-1 (Version None)
Quarter: 2010Q2

REPORT INFORMATION
  Report Type: 
  Country: None (occurrence: None)
  Receive Date: 20100629
  Receipt Date: 20100629
  Transmission Date: 20101027
  Serious: Yes (Other)
  Sender: FDA-Public Use
  Company Number: None

PATIENT
  Age: 41 Year
  Sex: Male
  Weight: 104.3273 kg

DRUGS (2)
  1. ALLI [Suspect]
     Indication: WEIGHT CONTROL
     Dosage: 1 3 TIMES PER DAY PO
     Route: 048
     Dates: start: 20070101, end: 20090630
  2. ALLI [Suspect]
     Indication: WEIGHT LOSS DIET
     Dosage: 1 3 TIMES PER DAY PO
     Route: 048
     Dates: start: 20070101, end: 20090630

REACTIONS (4)
  - ARTHRALGIA [None]
  - FAECES DISCOLOURED [None]
  - JOINT STIFFNESS [None]
  - UNEVALUABLE EVENT [None]
